FAERS Safety Report 6834255-0 (Version None)
Quarter: 2010Q3

REPORT INFORMATION
  Report Type: 
  Country: None (occurrence: None)
  Receive Date: 20100712
  Receipt Date: 20070417
  Transmission Date: 20110219
  Serious: No
  Sender: FDA-Public Use
  Company Number: US-PFIZER INC-2007031952

PATIENT
  Sex: Female
  Weight: 79 kg

DRUGS (12)
  1. CHANTIX [Suspect]
     Indication: SMOKING CESSATION THERAPY
     Dates: start: 20070401
  2. FLUNISOLIDE [Concomitant]
     Indication: HYPERSENSITIVITY
  3. ALL OTHER THERAPEUTIC PRODUCTS [Concomitant]
     Indication: IRRITABLE BOWEL SYNDROME
  4. LEVOTHYROXINE [Concomitant]
     Indication: THYROID DISORDER
  5. LIPITOR [Concomitant]
     Indication: BLOOD CHOLESTEROL INCREASED
  6. ZOLOFT [Concomitant]
  7. AMITRIPTYLINE HYDROCHLORIDE [Concomitant]
     Indication: PERIPHERAL NERVE INJURY
  8. CLONAZEPAM [Concomitant]
  9. ESTROGENS ESTERIFIED [Concomitant]
  10. ALBUTEROL [Concomitant]
  11. HYDROCODONE BITARTRATE [Concomitant]
     Indication: NERVOUS SYSTEM DISORDER
  12. LOPERAMIDE HYDROCHLORIDE [Concomitant]
     Indication: IRRITABLE BOWEL SYNDROME

REACTIONS (1)
  - NAUSEA [None]
